FAERS Safety Report 7481991-1 (Version None)
Quarter: 2011Q2

REPORT INFORMATION
  Report Type: 
  Country: None (occurrence: None)
  Receive Date: 20110516
  Receipt Date: 20110511
  Transmission Date: 20111010
  Serious: Yes (Hospitalization)
  Sender: FDA-Public Use
  Company Number: JP-ABBOTT-11P-087-0725231-00

PATIENT
  Age: 87 Year
  Sex: Female
  Weight: 50 kg

DRUGS (3)
  1. TRANSAMIN [Concomitant]
     Indication: ATYPICAL MYCOBACTERIAL INFECTION
     Dosage: 750 MG
     Route: 048
     Dates: end: 20110111
  2. CLARITHROMYCIN [Suspect]
     Indication: ATYPICAL MYCOBACTERIAL INFECTION
     Route: 048
     Dates: start: 20100317, end: 20110111
  3. ADONA [Concomitant]
     Indication: ATYPICAL MYCOBACTERIAL INFECTION
     Dosage: 30 MG
     Route: 048
     Dates: end: 20110111

REACTIONS (1)
  - CARDIAC FAILURE [None]
